FAERS Safety Report 6612075-X (Version None)
Quarter: 2010Q1

REPORT INFORMATION
  Report Type: 
  Country: None (occurrence: None)
  Receive Date: 20100303
  Receipt Date: 20100223
  Transmission Date: 20100710
  Serious: Yes (Other)
  Sender: FDA-Public Use
  Company Number: B0635377A

PATIENT
  Age: 7 Year
  Sex: Male
  Weight: 24 kg

DRUGS (2)
  1. SERETIDE [Suspect]
     Indication: ASTHMA
     Route: 055
     Dates: start: 20091203, end: 20100129
  2. VENTOLIN [Concomitant]
     Indication: ASTHMA
     Route: 055
     Dates: start: 20061220

REACTIONS (1)
  - ABNORMAL BEHAVIOUR [None]
